FAERS Safety Report 6472181-X (Version None)
Quarter: 2009Q4

REPORT INFORMATION
  Report Type: 
  Country: None (occurrence: None)
  Receive Date: 20091203
  Receipt Date: 20091123
  Transmission Date: 20100525
  Serious: Yes (Death, Other)
  Sender: FDA-Public Use
  Company Number: IE-WYE-H12389109

PATIENT

DRUGS (2)
  1. CORDARONE [Suspect]
     Indication: DRUG USE FOR UNKNOWN INDICATION
     Dosage: DOSE AND FREQUENCY NOT SPECIFIED
     Route: 065
  2. RANEXA [Interacting]
     Indication: DRUG USE FOR UNKNOWN INDICATION
     Dosage: DOSE AND FREQUENCY NOT SPECIFIED
     Route: 065

REACTIONS (2)
  - DEATH [None]
  - DRUG INTERACTION [None]
